FAERS Safety Report 10084143 (Version 3)
Quarter: 2014Q2

REPORT INFORMATION
  Report Type: Spontaneous
  Country: GB (occurrence: None)
  Receive Date: 20140415
  Receipt Date: 20140609
  Transmission Date: 20141212
  Serious: Yes (Death, Other)
  Sender: FDA-Public Use
  Company Number: 2288786

PATIENT
  Age: 41 Year
  Sex: Female
  Weight: 41 kg

DRUGS (3)
  1. GENTAMICIN SULFATE [Suspect]
     Indication: SUBACUTE ENDOCARDITIS
     Route: 051
     Dates: start: 20131212, end: 20131215
  2. FLUCLOXACILLIN [Concomitant]
  3. BENZYLPENICILLIN [Concomitant]

REACTIONS (17)
  - Medication error [None]
  - Haematuria [None]
  - Glomerular filtration rate decreased [None]
  - Renal failure acute [None]
  - Hypotension [None]
  - Tachycardia [None]
  - Pyrexia [None]
  - Endocarditis [None]
  - Streptococcal infection [None]
  - Blood culture positive [None]
  - Dyspnoea [None]
  - Palpitations [None]
  - Myocardial infarction [None]
  - Brain herniation [None]
  - Cerebral haemorrhage [None]
  - Drug prescribing error [None]
  - Haemodynamic instability [None]
